FAERS Safety Report 20379143 (Version 2)
Quarter: 2022Q1

REPORT INFORMATION
  Report Type: Other
  Country: US (occurrence: None)
  Receive Date: 20220126
  Receipt Date: 20220316
  Transmission Date: 20220423
  Serious: Yes (Hospitalization, Other)
  Sender: FDA-Public Use
  Company Number: US-ROCHE-3004200

PATIENT
  Age: 43 Year
  Sex: Female

DRUGS (4)
  1. XELODA [Suspect]
     Active Substance: CAPECITABINE
     Indication: Breast cancer female
     Dosage: TAKE 5 TABLET(S) BY MOUTH TWICE A DAY ON DAYS 1-14 EVERY 21 DAY(S)
     Route: 048
  2. XELODA [Suspect]
     Active Substance: CAPECITABINE
     Dosage: DAILY FOR 2 WEEKS, AND THEN A 7 DAY BREAK, 8 PILLS
     Route: 048
     Dates: start: 202010
  3. DEXAMETHASONE [Concomitant]
     Active Substance: DEXAMETHASONE
     Dosage: BETWEEN 2MG AND 4MG
  4. LEVETIRACETAM [Concomitant]
     Active Substance: LEVETIRACETAM

REACTIONS (9)
  - Seizure [Recovered/Resolved]
  - Metastases to central nervous system [Not Recovered/Not Resolved]
  - Blood pressure increased [Unknown]
  - Depression [Unknown]
  - Asthenia [Unknown]
  - Fatigue [Unknown]
  - Dizziness [Unknown]
  - Respiratory tract infection [Recovered/Resolved]
  - Peripheral swelling [Not Recovered/Not Resolved]

NARRATIVE: CASE EVENT DATE: 20210201
